FAERS Safety Report 16595817 (Version 2)
Quarter: 2019Q3

REPORT INFORMATION
  Report Type: Spontaneous
  Country: US (occurrence: US)
  Receive Date: 20190719
  Receipt Date: 20190719
  Transmission Date: 20191004
  Serious: Yes (Other)
  Sender: FDA-Public Use
  Company Number: US-CIPLA LTD.-2019US05155

PATIENT

DRUGS (6)
  1. CHOLECALCIFEROL [Suspect]
     Active Substance: CHOLECALCIFEROL
     Indication: VITAMIN SUPPLEMENTATION
     Dosage: UNK, DAILY
     Route: 048
  2. BETAMETHASONE. [Suspect]
     Active Substance: BETAMETHASONE
     Indication: MATERNAL THERAPY TO ENHANCE FOETAL LUNG MATURITY
     Dosage: 12 MILLIGRAM, UNK
     Route: 030
  3. AZITHROMYCIN ANHYDROUS. [Suspect]
     Active Substance: AZITHROMYCIN ANHYDROUS
     Indication: ANTIBIOTIC THERAPY
     Dosage: UNK
     Route: 065
  4. AMOXICILLIN. [Suspect]
     Active Substance: AMOXICILLIN
     Indication: ANTIBIOTIC THERAPY
     Dosage: UNK
     Route: 065
  5. ENOXAPARIN SODIUM. [Suspect]
     Active Substance: ENOXAPARIN SODIUM
     Indication: THROMBOSIS PROPHYLAXIS
     Dosage: 30 MILLIGRAM, BID
     Route: 065
  6. CALCIUM ACETATE. [Suspect]
     Active Substance: CALCIUM ACETATE
     Indication: MINERAL SUPPLEMENTATION
     Dosage: UNK, DAILY
     Route: 048

REACTIONS (3)
  - Preterm premature rupture of membranes [Unknown]
  - Exposure during pregnancy [Unknown]
  - Premature delivery [Unknown]
